FAERS Safety Report 8780882 (Version 1)
Quarter: 2012Q4

REPORT INFORMATION
  Report Type: 
  Country: GB (occurrence: GB)
  Receive Date: 20120913
  Receipt Date: 20120913
  Transmission Date: 20130627
  Serious: Yes (Other)
  Sender: FDA-Public Use
  Company Number: GB-JNJFOC-20120904686

PATIENT
  Age: 66 Year
  Sex: Female
  Weight: 74 kg

DRUGS (18)
  1. PALEXIA [Suspect]
     Indication: CENTRAL PAIN SYNDROME
     Route: 065
  2. ASPIRIN [Concomitant]
     Indication: PRODUCT USED FOR UNKNOWN INDICATION
     Route: 065
     Dates: start: 20120606
  3. CODEINE PHOSPHATE [Concomitant]
     Route: 065
     Dates: start: 20120626, end: 20120708
  4. LACTULOSE [Concomitant]
     Route: 065
     Dates: start: 20120801, end: 20120817
  5. MICONAZOLE [Concomitant]
     Route: 065
     Dates: start: 20120531, end: 20120628
  6. SERTRALINE [Concomitant]
     Route: 065
     Dates: start: 20120508
  7. METFORMIN [Concomitant]
     Route: 065
     Dates: start: 20120508
  8. AMLODIPINE [Concomitant]
     Indication: PRODUCT USED FOR UNKNOWN INDICATION
     Route: 065
     Dates: start: 20120508
  9. SENNA [Concomitant]
     Route: 065
     Dates: start: 20120523
  10. MORPHINE SULPHATE [Concomitant]
     Route: 065
     Dates: start: 20120612, end: 20120613
  11. DIPROBASE [Concomitant]
     Route: 065
     Dates: start: 20120501
  12. EPILIM [Concomitant]
     Route: 065
     Dates: start: 20120501
  13. CANDESARTAN [Concomitant]
     Route: 065
     Dates: start: 20120426
  14. QUININE [Concomitant]
     Route: 065
     Dates: start: 20120426
  15. GABAPENTIN [Concomitant]
     Route: 065
     Dates: start: 20120426
  16. AQUEOUS [Concomitant]
     Indication: PRODUCT USED FOR UNKNOWN INDICATION
     Route: 065
     Dates: start: 20111024
  17. BETNOVATE [Concomitant]
     Route: 065
     Dates: start: 20120416
  18. HYDROCORTISONE [Concomitant]
     Route: 065
     Dates: start: 20120618, end: 20120716

REACTIONS (1)
  - Partial seizures [Unknown]
